FAERS Safety Report 6133856-5 (Version None)
Quarter: 2009Q1

REPORT INFORMATION
  Report Type: 
  Country: None (occurrence: None)
  Receive Date: 20090326
  Receipt Date: 20090311
  Transmission Date: 20090719
  Serious: Yes (Death, Hospitalization)
  Sender: FDA-Public Use
  Company Number: MY-PFIZER INC-2008101475

PATIENT

DRUGS (7)
  1. SUNITINIB MALATE [Suspect]
     Indication: HEPATIC NEOPLASM MALIGNANT
     Dosage: 25 MG, 1X/DAY
     Route: 048
     Dates: start: 20081013, end: 20081209
  2. FRUSEMIDE [Concomitant]
     Dates: start: 20081121
  3. BISACODYL [Concomitant]
     Dates: start: 20081126
  4. NYSTATIN [Concomitant]
     Route: 048
     Dates: start: 20081126
  5. DAONIL [Concomitant]
     Dosage: UNK
     Route: 048
     Dates: start: 19950101
  6. METFORMIN [Concomitant]
     Indication: DIABETES MELLITUS
     Dosage: UNK
     Route: 048
     Dates: start: 19950101
  7. PERINDOPRIL [Concomitant]
     Indication: HYPERTENSION
     Dosage: UNK
     Route: 048
     Dates: start: 20080701

REACTIONS (1)
  - ASCITES [None]
